FAERS Safety Report 9769614 (Version 1)
Quarter: 2013Q3

REPORT INFORMATION
  Report Type: Spontaneous
  Country: US (occurrence: None)
  Receive Date: 20130911
  Receipt Date: 20130911
  Transmission Date: 20140515
  Serious: Yes (Hospitalization)
  Sender: FDA-Public Use
  Company Number: VAL_01913_2013

PATIENT
  Age: 61 Year
  Sex: Female
  Weight: 84.8 kg

DRUGS (2)
  1. METOPROLOL [Suspect]
     Indication: HYPERTENSION
     Dosage: 100 MG, QD REGIMEN #1
     Dates: start: 20101216
  2. ALISKIREN VS PLACEBO [Suspect]
     Indication: CARDIOVASCULAR DISORDER
     Dosage: DF REGIMEN #2 ORAL
     Route: 048
     Dates: start: 20100504, end: 20110713

REACTIONS (7)
  - Syncope [None]
  - Atrioventricular block second degree [None]
  - Atrioventricular block complete [None]
  - Cardiac arrest [None]
  - Pulmonary hypertension [None]
  - Disease progression [None]
  - Type 2 diabetes mellitus [None]
